FAERS Safety Report 14043044 (Version 1)
Quarter: 2017Q4

REPORT INFORMATION
  Report Type: Spontaneous
  Country: US (occurrence: US)
  Receive Date: 20171004
  Receipt Date: 20171004
  Transmission Date: 20180321
  Serious: No
  Sender: FDA-Public Use
  Company Number: US-PFIZER INC-2017428373

PATIENT
  Age: 47 Year
  Sex: Male
  Weight: 104.33 kg

DRUGS (1)
  1. VIAGRA [Suspect]
     Active Substance: SILDENAFIL CITRATE
     Indication: ERECTILE DYSFUNCTION
     Dosage: 25MG, TABLET, ONCE IN NIGHT
     Route: 048
     Dates: start: 201705

REACTIONS (3)
  - Ejaculation disorder [Not Recovered/Not Resolved]
  - Erection increased [Not Recovered/Not Resolved]
  - Genital discomfort [Unknown]

NARRATIVE: CASE EVENT DATE: 201708
